FAERS Safety Report 7995608-0 (Version None)
Quarter: 2011Q4

REPORT INFORMATION
  Report Type: 
  Country: None (occurrence: None)
  Receive Date: 20111220
  Receipt Date: 20111213
  Transmission Date: 20120403
  Serious: Yes (Hospitalization)
  Sender: FDA-Public Use
  Company Number: FR-MERCK-1112FRA00057

PATIENT
  Age: 44 Year
  Sex: Male

DRUGS (12)
  1. TENOFOVIR DISOPROXIL FUMARATE [Concomitant]
     Route: 048
     Dates: start: 20111205, end: 20111207
  2. ISENTRESS [Suspect]
     Indication: HIV INFECTION
     Route: 048
     Dates: start: 20111115, end: 20111202
  3. ISENTRESS [Suspect]
     Route: 048
     Dates: start: 20111205, end: 20111207
  4. ETRAVIRINE [Concomitant]
     Indication: HIV INFECTION
     Route: 048
     Dates: start: 20111115, end: 20111202
  5. SULFAMETHOXAZOLE AND TRIMETHOPRIM [Concomitant]
     Route: 048
     Dates: end: 20111127
  6. TENOFOVIR DISOPROXIL FUMARATE [Concomitant]
     Route: 048
     Dates: start: 20111209
  7. ETRAVIRINE [Concomitant]
     Route: 048
     Dates: start: 20111205, end: 20111207
  8. ABACAVIR SULFATE AND LAMIVUDINE [Concomitant]
     Indication: HIV INFECTION
     Route: 048
     Dates: start: 20070101, end: 20111202
  9. ABACAVIR SULFATE AND LAMIVUDINE [Concomitant]
     Route: 048
     Dates: start: 20111209
  10. TENOFOVIR DISOPROXIL FUMARATE [Concomitant]
     Indication: HIV INFECTION
     Route: 048
     Dates: start: 20070101, end: 20111202
  11. ABACAVIR SULFATE AND LAMIVUDINE [Concomitant]
     Route: 048
     Dates: start: 20111205, end: 20111207
  12. ETRAVIRINE [Concomitant]
     Route: 048
     Dates: start: 20111209

REACTIONS (2)
  - RASH GENERALISED [None]
  - FEBRILE NEUTROPENIA [None]
